FAERS Safety Report 8805777 (Version 1)
Quarter: 2012Q4

REPORT INFORMATION
  Report Type: Spontaneous
  Country: FR (occurrence: None)
  Receive Date: 20120918
  Receipt Date: 20120918
  Transmission Date: 20130627
  Serious: Yes (Hospitalization)
  Sender: FDA-Public Use
  Company Number: TPA2012A06686

PATIENT
  Age: 82 Year
  Sex: Male

DRUGS (3)
  1. ADENURIC [Suspect]
     Indication: DRUG USE FOR UNKNOWN INDICATION
     Route: 048
     Dates: start: 20120223, end: 20120325
  2. CRESTOR [Suspect]
     Indication: DRUG USE FOR UNKNOWN INDICATION
     Route: 048
     Dates: end: 20120325
  3. COLCHIMAX [Suspect]
     Route: 048
     Dates: start: 20120223, end: 20120325

REACTIONS (6)
  - Drug interaction [None]
  - Rhabdomyolysis [None]
  - Lung disorder [None]
  - Jaundice cholestatic [None]
  - Fall [None]
  - Cell death [None]
